FAERS Safety Report 8576630-2 (Version None)
Quarter: 2012Q3

REPORT INFORMATION
  Report Type: 
  Country: None (occurrence: None)
  Receive Date: 20120807
  Receipt Date: 20120217
  Transmission Date: 20120928
  Serious: Yes (Death, Hospitalization)
  Sender: FDA-Public Use
  Company Number: DE-CELGENEUS-062-20785-12053366

PATIENT
  Sex: Female

DRUGS (6)
  1. PREDNISONE [Concomitant]
     Route: 048
     Dates: start: 20110711
  2. ERYTHROCYTE TRANSFUSION [Concomitant]
     Route: 065
     Dates: start: 20110711
  3. MELPHALAN HYDROCHLORIDE [Concomitant]
     Route: 048
     Dates: start: 20110711
  4. THALIDOMIDE [Suspect]
     Indication: MULTIPLE MYELOMA
     Route: 048
     Dates: start: 20110711, end: 20110803
  5. ZOLEDRONIC ACID [Concomitant]
     Route: 065
     Dates: start: 20110517, end: 20110729
  6. BISPHOSPHONATE [Concomitant]
     Route: 065
     Dates: start: 20110711

REACTIONS (11)
  - DEHYDRATION [None]
  - ASTHENIA [None]
  - BLOOD CREATININE INCREASED [None]
  - DEATH [None]
  - DYSPHAGIA [None]
  - GENERAL PHYSICAL HEALTH DETERIORATION [None]
  - HAEMOGLOBIN ABNORMAL [None]
  - FLUID INTAKE REDUCED [None]
  - DECREASED APPETITE [None]
  - HYPERSOMNIA [None]
  - SOMNOLENCE [None]
